FAERS Safety Report 24870993 (Version 1)
Quarter: 2025Q1

REPORT INFORMATION
  Report Type: Spontaneous
  Country: JP (occurrence: JP)
  Receive Date: 20250122
  Receipt Date: 20250122
  Transmission Date: 20250409
  Serious: Yes (Death)
  Sender: EMD SERONO INC
  Company Number: JP-Merck Healthcare KGaA-2025002424

PATIENT
  Sex: Male

DRUGS (1)
  1. TEPMETKO [Suspect]
     Active Substance: TEPOTINIB HYDROCHLORIDE
     Indication: Product used for unknown indication

REACTIONS (3)
  - Death [Fatal]
  - Disease progression [Unknown]
  - Oral administration complication [Unknown]
